FAERS Safety Report 7181488 (Version 2)
Quarter: 2013Q3

REPORT INFORMATION
  Report Type: Spontaneous
  Country: EG (occurrence: None)
  Receive Date: 20091104
  Receipt Date: 20130708
  Transmission Date: 20140515
  Serious: Yes (Other)
  Sender: FDA-Public Use
  Company Number: AUR-APL-2009-00990

PATIENT
  Age: 55 Year
  Sex: Female
  Weight: 99 kg

DRUGS (2)
  1. RIBAVIRIN [Suspect]
     Indication: HEPATITIS C
     Dosage: 1200MG, DAILY,
  2. PEGYLATED INTERFERON [Suspect]
     Indication: HEPATITIS C
     Route: 058

REACTIONS (7)
  - Dyspnoea [None]
  - Haemoglobin decreased [None]
  - Palpitations [None]
  - Syncope [None]
  - Sinus tachycardia [None]
  - Ventricular extrasystoles [None]
  - Dizziness [None]
